FAERS Safety Report 6067558-0 (Version None)
Quarter: 2009Q1

REPORT INFORMATION
  Report Type: 
  Country: None (occurrence: None)
  Receive Date: 20090205
  Receipt Date: 20090129
  Transmission Date: 20090719
  Serious: Yes (Hospitalization)
  Sender: FDA-Public Use
  Company Number: US-GILEAD-2009-0020099

PATIENT
  Sex: Female
  Weight: 100.79 kg

DRUGS (10)
  1. LETAIRIS [Suspect]
     Indication: PULMONARY ARTERIAL HYPERTENSION
     Route: 048
     Dates: start: 20080404
  2. ZYRTEC [Concomitant]
  3. BETAPACE [Concomitant]
  4. GLYBURIDE [Concomitant]
  5. METFORMIN [Concomitant]
  6. DIOVAN HCT [Concomitant]
  7. ATROVENT [Concomitant]
  8. REVATIO [Concomitant]
  9. NEXIUM [Concomitant]
  10. GABAPENTIN [Concomitant]

REACTIONS (1)
  - VENTRICULAR TACHYCARDIA [None]
